FAERS Safety Report 9136265 (Version 1)
Quarter: 2013Q1

REPORT INFORMATION
  Report Type: Spontaneous
  Country: FR (occurrence: FR)
  Receive Date: 20130304
  Receipt Date: 20130304
  Transmission Date: 20140127
  Serious: Yes (Hospitalization)
  Sender: FDA-Public Use
  Company Number: FR-GLAXOSMITHKLINE-B0871244A

PATIENT
  Age: 64 Year
  Sex: Male

DRUGS (8)
  1. ZOPHREN [Suspect]
     Indication: PREMEDICATION
     Dosage: 8MG TWICE PER DAY
     Route: 042
     Dates: start: 20130125, end: 20130127
  2. PRIMPERAN [Suspect]
     Indication: PREMEDICATION
     Dosage: 10MG PER DAY
     Route: 042
     Dates: start: 20130126, end: 20130127
  3. SOLUMEDROL [Suspect]
     Indication: PREMEDICATION
     Dosage: 120MG PER DAY
     Route: 042
     Dates: start: 20130125, end: 20130126
  4. ZELITREX [Concomitant]
     Dosage: 500MG TWICE PER DAY
     Route: 048
     Dates: start: 20130121, end: 20130128
  5. METHOTREXATE [Concomitant]
     Indication: NON-HODGKIN^S LYMPHOMA
     Dosage: 5.5G PER DAY
     Route: 042
     Dates: start: 20130125, end: 20130125
  6. ETOPOSIDE [Concomitant]
     Indication: NON-HODGKIN^S LYMPHOMA
     Dosage: 180MG PER DAY
     Route: 042
     Dates: start: 20130126, end: 20130126
  7. ACUPAN [Concomitant]
     Dosage: 10MG PER DAY
     Route: 042
     Dates: start: 20130121, end: 20130125
  8. STILNOX [Concomitant]
     Route: 048
     Dates: start: 20130126, end: 20130127

REACTIONS (2)
  - Sinus bradycardia [Recovered/Resolved]
  - Renal failure [Recovered/Resolved]
